FAERS Safety Report 14425577 (Version 1)
Quarter: 2018Q1

REPORT INFORMATION
  Report Type: Report from Study
  Country: US (occurrence: US)
  Receive Date: 20180123
  Receipt Date: 20180123
  Transmission Date: 20180509
  Serious: Yes (Hospitalization)
  Sender: FDA-Public Use
  Company Number: US-BAYER-2017-170318

PATIENT
  Age: 68 Year
  Sex: Male

DRUGS (2)
  1. XOFIGO [Suspect]
     Active Substance: RADIUM RA-223 DICHLORIDE
     Indication: PROSTATE CANCER STAGE IV
     Dosage: 96.70 ?CI, ONCE
     Dates: start: 20170810, end: 20170810
  2. XOFIGO [Suspect]
     Active Substance: RADIUM RA-223 DICHLORIDE
     Indication: PROSTATE CANCER STAGE IV
     Dosage: 96.70 ?CI, ONCE (EVERY 28 DAYS)
     Route: 042
     Dates: start: 20171220

REACTIONS (2)
  - Hospice care [None]
  - Hospitalisation [None]

NARRATIVE: CASE EVENT DATE: 20170905
